FAERS Safety Report 8836569 (Version 1)
Quarter: 2012Q4

REPORT INFORMATION
  Report Type: Spontaneous
  Country: US (occurrence: None)
  Receive Date: 20121009
  Receipt Date: 20121009
  Transmission Date: 20130627
  Serious: Yes (Hospitalization, Other)
  Sender: FDA-Public Use
  Company Number: 2012P1057118

PATIENT
  Age: 55 Year
  Sex: Male
  Weight: 92.99 kg

DRUGS (3)
  1. WARFARIN SODIUM [Suspect]
     Indication: THROMBOSIS LEG
     Route: 048
     Dates: start: 20120520, end: 20120831
  2. WARFARIN SODIUM [Suspect]
     Indication: THROMBOSIS LEG
     Dosage: AS DIR
     Route: 048
     Dates: start: 20120912
  3. WARFARIN SODIUM [Suspect]
     Indication: THROMBOSIS LEG
     Route: 048
     Dates: start: 20120901

REACTIONS (6)
  - International normalised ratio decreased [None]
  - Abdominal discomfort [None]
  - Diarrhoea [None]
  - International normalised ratio increased [None]
  - Scar [None]
  - Chronic obstructive pulmonary disease [None]
